FAERS Safety Report 9882936 (Version 1)
Quarter: 2014Q1

REPORT INFORMATION
  Report Type: Report from Study
  Country: US (occurrence: US)
  Receive Date: 20140208
  Receipt Date: 20140208
  Transmission Date: 20141002
  Serious: Yes (Death)
  Sender: FDA-Public Use
  Company Number: US-ROCHE-1321096

PATIENT
  Age: 51 Year
  Sex: Male

DRUGS (9)
  1. AVASTIN [Suspect]
     Indication: COLON CANCER
     Route: 065
     Dates: start: 201101, end: 201103
  2. FLUOR [Concomitant]
     Dosage: 500MG
     Route: 065
  3. ATROPINE [Concomitant]
     Route: 065
  4. DECADRON [Concomitant]
     Dosage: 1M
     Route: 065
  5. LEUCOVORIN [Concomitant]
     Route: 065
  6. ZOFRAN [Concomitant]
     Route: 065
  7. VITAMIN B12 [Concomitant]
  8. CAMPTOSAR [Concomitant]
     Route: 065
  9. FLUOROURACIL [Concomitant]

REACTIONS (1)
  - Death [Fatal]
